FAERS Safety Report 9358229 (Version 1)
Quarter: 2013Q2

REPORT INFORMATION
  Report Type: Spontaneous
  Country: US (occurrence: US)
  Receive Date: 20130620
  Receipt Date: 20130620
  Transmission Date: 20140414
  Serious: No
  Sender: FDA-Public Use
  Company Number: US-GALDERMA-US13000285

PATIENT
  Age: 16 Year
  Sex: Female

DRUGS (2)
  1. DIFFERIN (ADAPALENE) CREAM, 0.1% [Suspect]
     Indication: ACNE
     Route: 061
     Dates: start: 2012, end: 2012
  2. CETAPHIL MOISTURIZING LOTION [Suspect]
     Indication: DRY SKIN PROPHYLAXIS
     Dates: start: 2010, end: 20120114

REACTIONS (4)
  - Skin burning sensation [Recovered/Resolved]
  - Skin exfoliation [Recovering/Resolving]
  - Dry skin [Recovering/Resolving]
  - Sunburn [Recovered/Resolved]
